FAERS Safety Report 25196982 (Version 1)
Quarter: 2025Q2

REPORT INFORMATION
  Report Type: Report from Study
  Country: US (occurrence: US)
  Receive Date: 20250415
  Receipt Date: 20250415
  Transmission Date: 20250717
  Serious: Yes (Other)
  Sender: TAKEDA
  Company Number: US-TAKEDA-2025TUS029506

PATIENT
  Sex: Male

DRUGS (4)
  1. FRUQUINTINIB [Suspect]
     Active Substance: FRUQUINTINIB
     Indication: Rectosigmoid cancer
  2. LOPERAMIDE [Suspect]
     Active Substance: LOPERAMIDE
     Indication: Product used for unknown indication
  3. MIRALAX [Concomitant]
     Active Substance: POLYETHYLENE GLYCOL 3350
  4. ADVIL [Concomitant]
     Active Substance: IBUPROFEN

REACTIONS (10)
  - Thrombosis [Unknown]
  - Constipation [Recovered/Resolved]
  - Headache [Unknown]
  - Peripheral swelling [Unknown]
  - Fluid retention [Unknown]
  - Dyspnoea [Unknown]
  - Gait inability [Unknown]
  - Dry skin [Unknown]
  - Gingival bleeding [Unknown]
  - Diarrhoea [Not Recovered/Not Resolved]
